FAERS Safety Report 5730428-9 (Version None)
Quarter: 2008Q2

REPORT INFORMATION
  Report Type: 
  Country: None (occurrence: None)
  Receive Date: 20080507
  Receipt Date: 20080428
  Transmission Date: 20081010
  Serious: Yes (Hospitalization, Other)
  Sender: FDA-Public Use
  Company Number: HQWYE693504MAY04

PATIENT
  Sex: Female

DRUGS (7)
  1. PREMPRO [Suspect]
     Indication: HORMONE REPLACEMENT THERAPY
     Dosage: UNSPECIFIED
     Route: 048
  2. PROVERA [Suspect]
  3. ESTRATEST [Suspect]
  4. ESTRADERM [Suspect]
  5. ESTROGEN NOS [Suspect]
  6. CONJUGATED ESTROGENS [Suspect]
  7. ESTRACE [Suspect]

REACTIONS (6)
  - ABDOMINAL PAIN LOWER [None]
  - ABDOMINAL PAIN UPPER [None]
  - BREAST CYST [None]
  - TRANSIENT ISCHAEMIC ATTACK [None]
  - URETHRAL DISORDER [None]
  - UTERINE HAEMORRHAGE [None]
